FAERS Safety Report 13244029 (Version 1)
Quarter: 2017Q1

REPORT INFORMATION
  Report Type: Spontaneous
  Country: US (occurrence: US)
  Receive Date: 20170216
  Receipt Date: 20170216
  Transmission Date: 20170428
  Serious: No
  Sender: FDA-Public Use
  Company Number: US-RELYPSA-RLY2017000307

PATIENT
  Age: 51 Year
  Sex: Male

DRUGS (3)
  1. RENVELA [Concomitant]
     Active Substance: SEVELAMER CARBONATE
     Dosage: 800 MG, UNKNOWN
  2. VELTASSA [Suspect]
     Active Substance: PATIROMER
     Indication: URINE PHOSPHORUS ABNORMAL
  3. VELTASSA [Suspect]
     Active Substance: PATIROMER
     Indication: BLOOD POTASSIUM ABNORMAL
     Dosage: 8.4 G, QD
     Route: 048
     Dates: start: 201701

REACTIONS (2)
  - Product solubility abnormal [Not Recovered/Not Resolved]
  - Faeces hard [Not Recovered/Not Resolved]

NARRATIVE: CASE EVENT DATE: 201701
